FAERS Safety Report 18526875 (Version 1)
Quarter: 2020Q4

REPORT INFORMATION
  Report Type: Spontaneous
  Country: US (occurrence: US)
  Receive Date: 20201120
  Receipt Date: 20201120
  Transmission Date: 20210114
  Serious: No
  Sender: FDA-Public Use
  Company Number: US-JNJFOC-20201128098

PATIENT
  Age: 11 Year
  Sex: Male

DRUGS (14)
  1. FAMOTIDINE. [Suspect]
     Active Substance: FAMOTIDINE
     Indication: VOMITING
  2. CETIRIZINE HYDROCHLORIDE. [Suspect]
     Active Substance: CETIRIZINE HYDROCHLORIDE
     Indication: SERUM SICKNESS-LIKE REACTION
  3. FAMOTIDINE. [Suspect]
     Active Substance: FAMOTIDINE
     Indication: PYREXIA
     Route: 065
  4. FAMOTIDINE. [Suspect]
     Active Substance: FAMOTIDINE
     Indication: VENOMOUS STING
  5. CETIRIZINE HYDROCHLORIDE. [Suspect]
     Active Substance: CETIRIZINE HYDROCHLORIDE
     Indication: VOMITING
  6. DIPHENHYDRAMINE HYDROCHLORIDE. [Suspect]
     Active Substance: DIPHENHYDRAMINE HYDROCHLORIDE
     Indication: RASH PRURITIC
     Route: 065
  7. FAMOTIDINE. [Suspect]
     Active Substance: FAMOTIDINE
     Indication: SERUM SICKNESS-LIKE REACTION
  8. CETIRIZINE HYDROCHLORIDE. [Suspect]
     Active Substance: CETIRIZINE HYDROCHLORIDE
     Indication: PYREXIA
     Route: 065
  9. PREDNISONE. [Suspect]
     Active Substance: PREDNISONE
     Indication: SERUM SICKNESS-LIKE REACTION
  10. PREDNISONE. [Suspect]
     Active Substance: PREDNISONE
     Indication: VENOMOUS STING
  11. DIPHENHYDRAMINE HYDROCHLORIDE. [Suspect]
     Active Substance: DIPHENHYDRAMINE HYDROCHLORIDE
     Indication: VENOMOUS STING
  12. DIPHENHYDRAMINE HYDROCHLORIDE. [Suspect]
     Active Substance: DIPHENHYDRAMINE HYDROCHLORIDE
     Indication: SERUM SICKNESS-LIKE REACTION
  13. PREDNISONE. [Suspect]
     Active Substance: PREDNISONE
     Indication: RASH PRURITIC
     Route: 065
  14. CETIRIZINE HYDROCHLORIDE. [Suspect]
     Active Substance: CETIRIZINE HYDROCHLORIDE
     Indication: VENOMOUS STING

REACTIONS (2)
  - Off label use [Unknown]
  - Product use in unapproved indication [Unknown]
